FAERS Safety Report 8577381-0 (Version None)
Quarter: 2012Q3

REPORT INFORMATION
  Report Type: 
  Country: None (occurrence: None)
  Receive Date: 20120807
  Receipt Date: 20120730
  Transmission Date: 20120928
  Serious: Yes (Hospitalization, Other)
  Sender: FDA-Public Use
  Company Number: JP-VERTEX PHARMACEUTICALS INC.-AE-2012-007649

PATIENT
  Age: 56 Year
  Sex: Male

DRUGS (15)
  1. BRANUTE [Concomitant]
     Route: 048
  2. POSTERISAN [Concomitant]
     Route: 061
     Dates: start: 20120323
  3. SELBEX [Concomitant]
     Route: 048
     Dates: start: 20120207
  4. TELAVIC [Suspect]
     Indication: HEPATITIS C
     Route: 048
     Dates: start: 20120207, end: 20120430
  5. LOXOPROFEN [Concomitant]
     Route: 048
     Dates: start: 20120207
  6. PEG-INTRON [Concomitant]
     Route: 058
     Dates: end: 20120504
  7. PEG-INTRON [Concomitant]
     Indication: HEPATITIS C
     Route: 058
     Dates: start: 20120113, end: 20120322
  8. PEG-INTRON [Concomitant]
     Route: 058
     Dates: start: 20120323
  9. REBETOL [Concomitant]
     Indication: HEPATITIS C
     Route: 048
     Dates: start: 20120113, end: 20120419
  10. REBETOL [Concomitant]
     Route: 048
     Dates: start: 20120420, end: 20120511
  11. BRANUTE [Concomitant]
     Route: 048
     Dates: start: 20120302, end: 20120328
  12. HIRUDOID [Concomitant]
     Route: 061
     Dates: start: 20120420
  13. ADOFEED [Concomitant]
     Route: 061
  14. LIVOSTIN [Concomitant]
     Route: 045
  15. ALLEGRA [Concomitant]
     Route: 048
     Dates: start: 20120413

REACTIONS (3)
  - ERYTHEMA [None]
  - HAEMOGLOBIN DECREASED [None]
  - HEPATIC FUNCTION ABNORMAL [None]
